FAERS Safety Report 10005849 (Version 2)
Quarter: 2014Q1

REPORT INFORMATION
  Report Type: Spontaneous
  Country: BE (occurrence: BE)
  Receive Date: 20140313
  Receipt Date: 20140313
  Transmission Date: 20141002
  Serious: Yes (Other)
  Sender: FDA-Public Use
  Company Number: BE-BEH-2013035985

PATIENT
  Age: 4 Year
  Sex: Male
  Weight: 14 kg

DRUGS (1)
  1. HIZENTRA [Suspect]
     Dosage: DOSE: 15 ML
     Route: 058
     Dates: start: 20130320

REACTIONS (8)
  - Pseudocroup [Recovered/Resolved]
  - Hyperventilation [Recovered/Resolved]
  - Flushing [Recovered/Resolved]
  - Nasal congestion [Recovered/Resolved]
  - Flushing [Recovered/Resolved]
  - Fatigue [Recovered/Resolved]
  - Injection site erythema [Unknown]
  - Injection site induration [Unknown]
